FAERS Safety Report 6440587-0 (Version None)
Quarter: 2009Q4

REPORT INFORMATION
  Report Type: 
  Country: None (occurrence: None)
  Receive Date: 20091113
  Receipt Date: 20091020
  Transmission Date: 20100525
  Serious: Yes (Hospitalization)
  Sender: FDA-Public Use
  Company Number: PT-MERCK-0910PRT00009

PATIENT
  Age: 35 Year
  Sex: Male

DRUGS (12)
  1. STOCRIN [Suspect]
     Indication: ANTIRETROVIRAL THERAPY
     Route: 065
     Dates: start: 20030201, end: 20051101
  2. CRIXIVAN [Suspect]
     Indication: VIRAL LOAD INCREASED
     Route: 065
     Dates: start: 19970401, end: 19980601
  3. CRIXIVAN [Suspect]
     Indication: CD4 LYMPHOCYTES DECREASED
     Route: 065
     Dates: start: 19970401, end: 19980601
  4. STAVUDINE [Concomitant]
     Indication: ANTIRETROVIRAL THERAPY
     Route: 065
     Dates: start: 20030201, end: 20051101
  5. STAVUDINE [Concomitant]
     Route: 065
     Dates: start: 19980101
  6. NELFINAVIR MESYLATE [Concomitant]
     Indication: ANTIRETROVIRAL THERAPY
     Route: 065
     Dates: start: 19980101
  7. RITONAVIR [Concomitant]
     Indication: ANTIRETROVIRAL THERAPY
     Route: 065
     Dates: start: 20051101
  8. ABACAVIR SULFATE [Concomitant]
     Indication: ANTIRETROVIRAL THERAPY
     Route: 065
     Dates: start: 20050101
  9. TIPRANAVIR [Concomitant]
     Indication: ANTIRETROVIRAL THERAPY
     Route: 065
     Dates: start: 20051101
  10. LOPINAVIR AND RITONAVIR [Concomitant]
     Indication: ANTIRETROVIRAL THERAPY
     Route: 065
     Dates: start: 20030201, end: 20051101
  11. TENOFOVIR [Concomitant]
     Indication: ANTIRETROVIRAL THERAPY
     Route: 065
     Dates: start: 20051101
  12. LAMIVUDINE [Concomitant]
     Indication: ANTIRETROVIRAL THERAPY
     Route: 065
     Dates: start: 19980101

REACTIONS (9)
  - ABDOMINAL DISTENSION [None]
  - CORONARY ARTERY DISEASE [None]
  - DRUG INEFFECTIVE [None]
  - DYSLIPIDAEMIA [None]
  - LIPIDS ABNORMAL [None]
  - LIPODYSTROPHY ACQUIRED [None]
  - MYOCARDIAL INFARCTION [None]
  - PATHOGEN RESISTANCE [None]
  - VIRAL LOAD INCREASED [None]
